FAERS Safety Report 5964413-9 (Version None)
Quarter: 2008Q4

REPORT INFORMATION
  Report Type: 
  Country: None (occurrence: None)
  Receive Date: 20081124
  Receipt Date: 20081113
  Transmission Date: 20090506
  Serious: Yes (Other)
  Sender: FDA-Public Use
  Company Number: FR-PFIZER INC-2008097008

PATIENT
  Sex: Male
  Weight: 63.5 kg

DRUGS (6)
  1. MARAVIROC [Suspect]
     Indication: HIV INFECTION
     Route: 048
     Dates: start: 20080527
  2. LAMIVUDINE [Concomitant]
     Route: 048
     Dates: start: 20000914
  3. PRAVASTATIN [Concomitant]
     Route: 048
     Dates: start: 20051106, end: 20081016
  4. RITONAVIR [Concomitant]
     Route: 048
     Dates: start: 20080527
  5. ATAZANAVIR SULFATE [Concomitant]
     Route: 048
     Dates: start: 20080527
  6. ALL OTHER THERAPEUTIC PRODUCTS [Concomitant]
     Route: 048
     Dates: start: 20081011, end: 20081018

REACTIONS (1)
  - BASAL CELL CARCINOMA [None]
